FAERS Safety Report 6419833-5 (Version None)
Quarter: 2009Q4

REPORT INFORMATION
  Report Type: 
  Country: None (occurrence: None)
  Receive Date: 20091013
  Receipt Date: 20090803
  Transmission Date: 20100525
  Serious: Yes (Other)
  Sender: FDA-Public Use
  Company Number: US-JNJFOC-20090702492

PATIENT
  Age: 36 Year
  Sex: Female

DRUGS (2)
  1. MONISTAT 1 COMBINATION PACK [Suspect]
     Indication: DRUG USE FOR UNKNOWN INDICATION
     Dosage: 1200 MG, 1 IN, VAGINAL
     Route: 067
     Dates: start: 20090703, end: 20090703
  2. MONISTAT 1 COMBINATION PACK [Suspect]
     Indication: DRUG USE FOR UNKNOWN INDICATION
     Dosage: 9G TUBE 2% STRENGTH EXTERNAL CREAM
     Dates: start: 20070703, end: 20070703

REACTIONS (1)
  - VULVOVAGINAL PRURITUS [None]
